FAERS Safety Report 4286823-0 (Version None)
Quarter: 2004Q1

REPORT INFORMATION
  Report Type: 
  Country: None (occurrence: None)
  Receive Date: 20040206
  Receipt Date: 20040128
  Transmission Date: 20041129
  Serious: Yes (Hospitalization)
  Sender: FDA-Public Use
  Company Number: FR-ROCHE-357412

PATIENT
  Age: 66 Year
  Sex: Male

DRUGS (7)
  1. RIVOTRIL [Suspect]
     Indication: DRUG USE FOR UNKNOWN INDICATION
     Route: 048
     Dates: start: 19970101
  2. ALFENTANIL [Interacting]
     Indication: GENERAL ANAESTHESIA
     Dosage: DRUG REPORTED: RAPIFEN 1MG (0.5MG/ML) FORMULATION REPORTED: INJECTABLE SOLUTION
     Route: 042
     Dates: start: 20031121, end: 20031121
  3. DIPRIVAN [Interacting]
     Indication: GENERAL ANAESTHESIA
     Dosage: DRUG REPORTED: DIPRIVAN 1G/100ML FORMULATION REPORTED: INJECTABLE SOLUTION
     Route: 042
     Dates: start: 20031121, end: 20031121
  4. LOXAPAC [Concomitant]
     Dates: end: 20031126
  5. ACETAMINOPHEN W/ CODEINE [Concomitant]
     Dates: end: 20031125
  6. DIAMICRON [Concomitant]
  7. TEGRETOL [Concomitant]

REACTIONS (4)
  - DRUG INTERACTION [None]
  - HYPOTONIA [None]
  - PYREXIA [None]
  - RHABDOMYOLYSIS [None]
